FAERS Safety Report 5235152-7 (Version None)
Quarter: 2007Q1

REPORT INFORMATION
  Report Type: 
  Country: None (occurrence: None)
  Receive Date: 20070207
  Receipt Date: 20070202
  Transmission Date: 20070707
  Serious: Yes (Death)
  Sender: FDA-Public Use
  Company Number: 236006

PATIENT
  Age: 57 Year
  Sex: Female

DRUGS (7)
  1. GRTPA (ALTEPLASE) PWDR + SOLVENT, INFUSION SOLN [Suspect]
     Indication: DRUG USE FOR UNKNOWN INDICATION
     Dosage: SINGLE, INTRAVENOUS
     Route: 042
     Dates: start: 20060919, end: 20060919
  2. RADICUT (EDARAVONE) [Concomitant]
  3. ISOTONIC SOLUTION [Concomitant]
  4. LACTATED RINGER'S (RINGER'S SOLUTION) [Concomitant]
  5. ARGATROBAN [Concomitant]
  6. DOPAMINE HYDROCHLORIDE [Concomitant]
  7. PIPERACILLIN (PIPERACILLIN SODIUM) [Concomitant]

REACTIONS (7)
  - BLOOD GLUCOSE INCREASED [None]
  - BLOOD PRESSURE DECREASED [None]
  - BRAIN STEM INFARCTION [None]
  - HAEMATOCRIT DECREASED [None]
  - PLATELET COUNT DECREASED [None]
  - PNEUMONIA [None]
  - RED BLOOD CELL COUNT DECREASED [None]
